FAERS Safety Report 11069642 (Version 1)
Quarter: 2015Q2

REPORT INFORMATION
  Report Type: Spontaneous
  Country: US (occurrence: US)
  Receive Date: 20150427
  Receipt Date: 20150427
  Transmission Date: 20150821
  Serious: No
  Sender: FDA-Public Use
  Company Number: US-GLAXOSMITHKLINE-US2015GSK056203

PATIENT
  Sex: Female

DRUGS (1)
  1. VOTRIENT [Suspect]
     Active Substance: PAZOPANIB HYDROCHLORIDE
     Indication: RENAL CANCER
     Dosage: 800 MG, QD
     Route: 048
     Dates: start: 20150325, end: 20150422

REACTIONS (5)
  - Hepatic enzyme increased [Unknown]
  - Stomatitis [Unknown]
  - Hyperaesthesia [Unknown]
  - Erythema [Unknown]
  - Tongue ulceration [Unknown]
